FAERS Safety Report 5673165-1 (Version None)
Quarter: 2008Q1

REPORT INFORMATION
  Report Type: 
  Country: None (occurrence: None)
  Receive Date: 20080319
  Receipt Date: 20080312
  Transmission Date: 20080703
  Serious: Yes (Other)
  Sender: FDA-Public Use
  Company Number: US-BRISTOL-MYERS SQUIBB COMPANY-14101091

PATIENT
  Age: 54 Year
  Sex: Female

DRUGS (3)
  1. ORENCIA [Suspect]
     Indication: RHEUMATOID ARTHRITIS
     Dosage: LAST DOSE: JUN 2007
     Route: 042
     Dates: start: 20060901
  2. METHOTREXATE [Concomitant]
  3. CELEBREX [Concomitant]

REACTIONS (2)
  - COLON CANCER [None]
  - RHEUMATOID NODULE [None]
